FAERS Safety Report 22606297 (Version 22)
Quarter: 2024Q3

REPORT INFORMATION
  Report Type: Report from Study
  Country: CH (occurrence: CH)
  Receive Date: 20230615
  Receipt Date: 20240724
  Transmission Date: 20241016
  Serious: Yes (Hospitalization)
  Sender: SANOFI AVENTIS
  Company Number: CH-SA-SAC20230512000273

PATIENT
  Age: 46 Year
  Sex: Male
  Weight: 100.1 kg

DRUGS (40)
  1. ISATUXIMAB [Suspect]
     Active Substance: ISATUXIMAB
     Indication: Plasma cell myeloma refractory
     Dosage: 1000 MG, QW
     Route: 065
     Dates: start: 20230508, end: 20230604
  2. ISATUXIMAB [Suspect]
     Active Substance: ISATUXIMAB
     Dosage: 1000 MG, BIW
     Dates: start: 20230605
  3. ISATUXIMAB [Suspect]
     Active Substance: ISATUXIMAB
     Dosage: UNK MG, BIW
     Route: 065
     Dates: start: 20230619, end: 20230625
  4. ISATUXIMAB [Suspect]
     Active Substance: ISATUXIMAB
     Dosage: 1000 MG, BIW
     Route: 065
     Dates: start: 20230710, end: 20230806
  5. ISATUXIMAB [Suspect]
     Active Substance: ISATUXIMAB
     Dosage: 1000 MG, BIW
     Dates: start: 20230626, end: 20230709
  6. ISATUXIMAB [Suspect]
     Active Substance: ISATUXIMAB
     Dosage: 1000 MG, BIW
     Dates: start: 20230807
  7. ISATUXIMAB [Suspect]
     Active Substance: ISATUXIMAB
     Dosage: 1000 MG, BIW
     Dates: start: 20240130, end: 20240226
  8. ISATUXIMAB [Suspect]
     Active Substance: ISATUXIMAB
     Dosage: 1000 MG, BIW
     Dates: start: 20240227, end: 20240325
  9. ISATUXIMAB [Suspect]
     Active Substance: ISATUXIMAB
     Dosage: 1000 MG, BIW
     Dates: start: 20240326, end: 20240422
  10. ISATUXIMAB [Suspect]
     Active Substance: ISATUXIMAB
     Dosage: 1000 MG, BIW
     Dates: start: 20240423, end: 20240520
  11. ISATUXIMAB [Suspect]
     Active Substance: ISATUXIMAB
     Dosage: 1000 MG, BIW
     Dates: start: 20240521
  12. DEXAMETHASONE [Suspect]
     Active Substance: DEXAMETHASONE
     Indication: Plasma cell myeloma refractory
     Dosage: 20 MG (FREQUENCY: DAY 1, 2, 8, 9, 15, 16, 22, 23
     Dates: start: 20230508, end: 20230604
  13. DEXAMETHASONE [Suspect]
     Active Substance: DEXAMETHASONE
     Dosage: 20 MG, QW
     Dates: start: 20230605
  14. DEXAMETHASONE [Suspect]
     Active Substance: DEXAMETHASONE
     Dosage: 20 MG, QW
     Dates: start: 20230619, end: 20230709
  15. DEXAMETHASONE [Suspect]
     Active Substance: DEXAMETHASONE
     Dosage: 20 MG, QW
     Dates: start: 20230710, end: 20230716
  16. DEXAMETHASONE [Suspect]
     Active Substance: DEXAMETHASONE
     Dosage: 12 MG, QW
     Dates: start: 20230717, end: 20230806
  17. DEXAMETHASONE [Suspect]
     Active Substance: DEXAMETHASONE
     Dosage: 8 MG, QW
     Dates: start: 20230807
  18. DEXAMETHASONE [Suspect]
     Active Substance: DEXAMETHASONE
     Dosage: 4 MG, QW
     Dates: start: 20231030, end: 20231105
  19. DEXAMETHASONE [Suspect]
     Active Substance: DEXAMETHASONE
     Dosage: 2 MG
     Dates: start: 20240130, end: 20240226
  20. DEXAMETHASONE [Suspect]
     Active Substance: DEXAMETHASONE
     Dosage: 2 MG
     Dates: start: 20240227, end: 20240325
  21. DEXAMETHASONE [Suspect]
     Active Substance: DEXAMETHASONE
     Dosage: 2 MG (DAY 1,8 AND 15)
     Dates: start: 20240326, end: 20240422
  22. DEXAMETHASONE [Suspect]
     Active Substance: DEXAMETHASONE
     Dosage: 2 MG, BIW
     Dates: start: 20240423, end: 20240520
  23. CARFILZOMIB [Suspect]
     Active Substance: CARFILZOMIB
     Indication: Plasma cell myeloma refractory
     Dosage: 40 MG (FREQUENCY: DAY 1,2, 8 AND 15
     Dates: start: 20230508, end: 20230604
  24. CARFILZOMIB [Suspect]
     Active Substance: CARFILZOMIB
     Dosage: 140 MG (FREQUENCY: DAY 1, 8 AND 15
     Dates: start: 20230605, end: 20230611
  25. CARFILZOMIB [Suspect]
     Active Substance: CARFILZOMIB
     Dosage: 140 MG (FREQUENCY: DAY 1, 8 AND 15
     Dates: start: 20230619, end: 20230709
  26. CARFILZOMIB [Suspect]
     Active Substance: CARFILZOMIB
     Dosage: 140 MG (FREQUENCY: DAY 1, 8 AND 15
     Dates: start: 20230710, end: 20230806
  27. CARFILZOMIB [Suspect]
     Active Substance: CARFILZOMIB
     Dosage: 140 MG
     Dates: start: 20230807
  28. CARFILZOMIB [Suspect]
     Active Substance: CARFILZOMIB
     Dosage: 100 MG (FREQUENCY: DAY 1, 8, AND 15)
     Dates: start: 20240130, end: 20240226
  29. CARFILZOMIB [Suspect]
     Active Substance: CARFILZOMIB
     Dosage: 100 MG (FREQUENCY: DAY 1, 8 AND 15)
     Dates: start: 20240227, end: 20240325
  30. CARFILZOMIB [Suspect]
     Active Substance: CARFILZOMIB
     Dosage: 100 MG (FREQUENCY: DAY 1, 8 AND 15)
     Dates: start: 20240326, end: 20240422
  31. CARFILZOMIB [Suspect]
     Active Substance: CARFILZOMIB
     Dosage: 100 MG, BIW
     Dates: start: 20240423, end: 20240520
  32. CARFILZOMIB [Suspect]
     Active Substance: CARFILZOMIB
     Dosage: 100 MG, BIW
     Dates: start: 20240521
  33. CALCIMAGON [CALCIUM] [Concomitant]
     Indication: Osteolysis
     Dosage: UNK
     Dates: start: 202110
  34. PANTOPRAZOLE [Concomitant]
     Active Substance: PANTOPRAZOLE
     Indication: Prophylaxis
     Dosage: UNK
     Dates: start: 202111
  35. VALTREX [Concomitant]
     Active Substance: VALACYCLOVIR HYDROCHLORIDE
     Dosage: UNK
     Dates: start: 20230508
  36. XGEVA [Concomitant]
     Active Substance: DENOSUMAB
     Indication: Plasma cell myeloma
     Dosage: UNK
     Dates: start: 20211025
  37. DAFALGAN [Concomitant]
     Active Substance: ACETAMINOPHEN
     Indication: Premedication
     Dosage: UNK
     Dates: start: 20230508, end: 20230710
  38. CLEMASTINE FUMARATE [Concomitant]
     Active Substance: CLEMASTINE FUMARATE
     Indication: Premedication
     Dosage: UNK
     Dates: start: 20230508, end: 20230903
  39. BACTRIM [Concomitant]
     Active Substance: SULFAMETHOXAZOLE\TRIMETHOPRIM
     Indication: Prophylaxis
     Dosage: UNK
     Dates: start: 20230508
  40. MAGNESIUM ASPARTATE HYDROCHLORIDE [Concomitant]
     Active Substance: MAGNESIUM ASPARTATE HYDROCHLORIDE
     Dosage: UNK
     Dates: start: 20230621

REACTIONS (20)
  - Bile duct stone [Recovered/Resolved]
  - Superficial vein thrombosis [Recovered/Resolved]
  - Infusion related reaction [Recovered/Resolved]
  - White blood cell count decreased [Recovered/Resolved]
  - Platelet count decreased [Not Recovered/Not Resolved]
  - Platelet count decreased [Not Recovered/Not Resolved]
  - Neutrophil count decreased [Recovered/Resolved]
  - White blood cell count decreased [Recovered/Resolved]
  - White blood cell count decreased [Recovered/Resolved]
  - Anaemia [Recovered/Resolved]
  - Anaemia [Not Recovered/Not Resolved]
  - Muscle spasms [Recovering/Resolving]
  - Anaemia [Recovered/Resolved]
  - Agitation [Recovered/Resolved]
  - White blood cell count decreased [Recovered/Resolved]
  - Infusion related reaction [Recovering/Resolving]
  - Platelet count decreased [Recovered/Resolved]
  - Platelet count decreased [Not Recovered/Not Resolved]
  - Agitation [Recovering/Resolving]
  - Platelet count decreased [Not Recovered/Not Resolved]

NARRATIVE: CASE EVENT DATE: 20230508
